FAERS Safety Report 13351416 (Version 1)
Quarter: 2017Q1

REPORT INFORMATION
  Report Type: Spontaneous
  Country: GB (occurrence: GB)
  Receive Date: 20170320
  Receipt Date: 20170320
  Transmission Date: 20170429
  Serious: Yes (Other)
  Sender: FDA-Public Use
  Company Number: GB-NOVAST LABORATORIES, LTD-GB-2017NOV000014

PATIENT
  Age: 30 Year
  Sex: Female

DRUGS (3)
  1. LEVONORGESTREL\ETHINYL ESTRADIOL [Suspect]
     Active Substance: ETHINYL ESTRADIOL\LEVONORGESTREL
     Indication: GONADAL DYSGENESIS
     Dosage: 150 ?G/30 ?G, QD
  2. TIBOLONE [Suspect]
     Active Substance: TIBOLONE
     Indication: GONADAL DYSGENESIS
     Dosage: UNK
  3. PREMPAK C [Suspect]
     Active Substance: ESTROGENS, CONJUGATED\NORGESTREL
     Indication: GONADAL DYSGENESIS
     Dosage: 1.25 MG (CONJUGATED OESTROGENS 1.25 MG (EQUINE), NORGESTREL 75 ? G)

REACTIONS (1)
  - Endometrial cancer stage I [Unknown]
